FAERS Safety Report 7206249-7 (Version None)
Quarter: 2011Q1

REPORT INFORMATION
  Report Type: 
  Country: None (occurrence: None)
  Receive Date: 20110103
  Receipt Date: 20101221
  Transmission Date: 20110831
  Serious: Yes (Hospitalization)
  Sender: FDA-Public Use
  Company Number: US-ELI_LILLY_AND_COMPANY-US201012005692

PATIENT
  Sex: Male

DRUGS (10)
  1. CIALIS [Suspect]
     Indication: ERECTILE DYSFUNCTION
     Dosage: 20 MG, AS NEEDED
  2. CIALIS [Suspect]
     Dosage: 5 MG, UNK
  3. PSEUDOEPHEDRINE HYDROCHLORIDE [Concomitant]
     Dosage: UNK, AS NEEDED
  4. CIALIS [Suspect]
     Dosage: 20 MG, AS NEEDED
  5. KLOR-CON [Concomitant]
     Dosage: 20 MEQ, 2/D
  6. ONE TABLET DAILY ADULTS 50+ [Concomitant]
  7. KLOR-CON [Concomitant]
     Dosage: 25 MEQ, 3/D
  8. INDAPAMIDE [Concomitant]
  9. OMEPRAZOLE [Concomitant]
     Indication: GASTROOESOPHAGEAL REFLUX DISEASE
     Dosage: 20 MG, UNK
  10. SIMVASTATIN [Concomitant]

REACTIONS (12)
  - PROSTATIC DISORDER [None]
  - SPINAL OPERATION [None]
  - SPINAL LAMINECTOMY [None]
  - ARTHRALGIA [None]
  - DRUG INEFFECTIVE [None]
  - PAIN IN EXTREMITY [None]
  - MUSCLE SPASMS [None]
  - DRUG INTERACTION [None]
  - MIDDLE INSOMNIA [None]
  - INFLAMMATION [None]
  - BONE PAIN [None]
  - BLOOD POTASSIUM DECREASED [None]
